FAERS Safety Report 24657110 (Version 1)
Quarter: 2024Q4

REPORT INFORMATION
  Report Type: Spontaneous
  Country: CA (occurrence: CA)
  Receive Date: 20241125
  Receipt Date: 20241125
  Transmission Date: 20250114
  Serious: Yes (Death, Life-Threatening, Hospitalization, Disabling, Other)
  Sender: Haleon PLC
  Company Number: CA-002147023-NVSC2020CA224094

PATIENT
  Age: 44 Year
  Sex: Female
  Weight: 68 kg

DRUGS (427)
  1. DICLOFENAC SODIUM [Suspect]
     Active Substance: DICLOFENAC SODIUM
     Indication: Product used for unknown indication
     Route: 065
  2. DICLOFENAC SODIUM [Suspect]
     Active Substance: DICLOFENAC SODIUM
     Indication: Rheumatoid arthritis
     Route: 065
  3. DICLOFENAC SODIUM [Suspect]
     Active Substance: DICLOFENAC SODIUM
     Route: 048
  4. DICLOFENAC SODIUM [Suspect]
     Active Substance: DICLOFENAC SODIUM
     Route: 065
  5. DICLOFENAC SODIUM [Suspect]
     Active Substance: DICLOFENAC SODIUM
     Route: 065
  6. DICLOFENAC SODIUM [Suspect]
     Active Substance: DICLOFENAC SODIUM
     Route: 058
  7. DICLOFENAC SODIUM [Suspect]
     Active Substance: DICLOFENAC SODIUM
     Route: 047
  8. DICLOFENAC SODIUM [Suspect]
     Active Substance: DICLOFENAC SODIUM
     Route: 065
  9. DICLOFENAC SODIUM [Suspect]
     Active Substance: DICLOFENAC SODIUM
     Route: 065
  10. CHLORHEXIDINE GLUCONATE [Suspect]
     Active Substance: CHLORHEXIDINE GLUCONATE
     Indication: Product used for unknown indication
     Route: 048
  11. CHLORHEXIDINE GLUCONATE [Suspect]
     Active Substance: CHLORHEXIDINE GLUCONATE
     Route: 002
  12. CHLORHEXIDINE GLUCONATE [Suspect]
     Active Substance: CHLORHEXIDINE GLUCONATE
     Route: 048
  13. CHLORHEXIDINE GLUCONATE [Suspect]
     Active Substance: CHLORHEXIDINE GLUCONATE
     Route: 061
  14. CHLORHEXIDINE GLUCONATE [Suspect]
     Active Substance: CHLORHEXIDINE GLUCONATE
     Route: 002
  15. BORAGE OIL [Suspect]
     Active Substance: BORAGE OIL
     Indication: Product used for unknown indication
     Route: 065
  16. EMEND [Suspect]
     Active Substance: APREPITANT
     Indication: Product used for unknown indication
     Route: 065
  17. EMEND [Suspect]
     Active Substance: APREPITANT
     Route: 042
  18. CORTISONE ACETATE [Suspect]
     Active Substance: CORTISONE ACETATE
     Indication: Rheumatoid arthritis
     Route: 061
  19. CORTISONE ACETATE [Suspect]
     Active Substance: CORTISONE ACETATE
     Route: 061
  20. CORTISONE ACETATE [Suspect]
     Active Substance: CORTISONE ACETATE
     Route: 048
  21. CORTISONE ACETATE [Suspect]
     Active Substance: CORTISONE ACETATE
     Route: 048
  22. INFLIXIMAB [Suspect]
     Active Substance: INFLIXIMAB
     Indication: Rheumatoid arthritis
     Route: 042
  23. INFLIXIMAB [Suspect]
     Active Substance: INFLIXIMAB
     Route: 065
  24. INFLIXIMAB [Suspect]
     Active Substance: INFLIXIMAB
     Route: 042
  25. STELARA [Suspect]
     Active Substance: USTEKINUMAB
     Indication: Psoriatic arthropathy
     Route: 042
  26. STELARA [Suspect]
     Active Substance: USTEKINUMAB
     Indication: Product used for unknown indication
     Route: 058
  27. STELARA [Suspect]
     Active Substance: USTEKINUMAB
     Route: 065
  28. STELARA [Suspect]
     Active Substance: USTEKINUMAB
     Route: 042
  29. STELARA [Suspect]
     Active Substance: USTEKINUMAB
     Route: 058
  30. STELARA [Suspect]
     Active Substance: USTEKINUMAB
     Route: 058
  31. STELARA [Suspect]
     Active Substance: USTEKINUMAB
     Route: 065
  32. CELECOXIB [Suspect]
     Active Substance: CELECOXIB
     Indication: Product used for unknown indication
     Route: 065
  33. CELECOXIB [Suspect]
     Active Substance: CELECOXIB
     Route: 065
  34. PREDNISONE [Suspect]
     Active Substance: PREDNISONE
     Indication: Rheumatoid arthritis
     Route: 042
  35. PREDNISONE [Suspect]
     Active Substance: PREDNISONE
     Indication: Condition aggravated
     Route: 048
  36. PREDNISONE [Suspect]
     Active Substance: PREDNISONE
     Indication: Psoriatic arthropathy
     Route: 048
  37. PREDNISONE [Suspect]
     Active Substance: PREDNISONE
     Route: 065
  38. PREDNISONE [Suspect]
     Active Substance: PREDNISONE
     Route: 048
  39. PREDNISONE [Suspect]
     Active Substance: PREDNISONE
     Route: 065
  40. PREDNISONE [Suspect]
     Active Substance: PREDNISONE
     Route: 048
  41. PREDNISONE [Suspect]
     Active Substance: PREDNISONE
     Route: 048
  42. VOLTAREN [Suspect]
     Active Substance: DICLOFENAC SODIUM
     Indication: Product used for unknown indication
     Route: 065
  43. LYRICA [Suspect]
     Active Substance: PREGABALIN
     Indication: Product used for unknown indication
     Route: 065
  44. CELEBREX [Suspect]
     Active Substance: CELECOXIB
     Indication: Product used for unknown indication
     Route: 048
  45. CELEBREX [Suspect]
     Active Substance: CELECOXIB
     Indication: Arthritis
     Route: 065
  46. CELEBREX [Suspect]
     Active Substance: CELECOXIB
     Indication: Rheumatoid arthritis
     Route: 065
  47. CELEBREX [Suspect]
     Active Substance: CELECOXIB
     Route: 048
  48. SULFAMETHOXAZOLE AND TRIMETHOPRIM [Suspect]
     Active Substance: SULFAMETHOXAZOLE\TRIMETHOPRIM
     Indication: Product used for unknown indication
     Route: 065
  49. SULFAMETHOXAZOLE AND TRIMETHOPRIM [Suspect]
     Active Substance: SULFAMETHOXAZOLE\TRIMETHOPRIM
     Route: 065
  50. SULFAMETHOXAZOLE AND TRIMETHOPRIM [Suspect]
     Active Substance: SULFAMETHOXAZOLE\TRIMETHOPRIM
     Route: 065
  51. CHLORHEXIDINE ACETATE [Suspect]
     Active Substance: CHLORHEXIDINE ACETATE
     Indication: Product used for unknown indication
     Route: 061
  52. CHLORHEXIDINE ACETATE [Suspect]
     Active Substance: CHLORHEXIDINE ACETATE
     Route: 048
  53. CHLORHEXIDINE ACETATE [Suspect]
     Active Substance: CHLORHEXIDINE ACETATE
     Route: 002
  54. CHLORHEXIDINE ACETATE [Suspect]
     Active Substance: CHLORHEXIDINE ACETATE
     Route: 065
  55. CHLORHEXIDINE ACETATE [Suspect]
     Active Substance: CHLORHEXIDINE ACETATE
     Route: 048
  56. CHLORHEXIDINE ACETATE [Suspect]
     Active Substance: CHLORHEXIDINE ACETATE
     Route: 002
  57. ALENDRONATE SODIUM [Suspect]
     Active Substance: ALENDRONATE SODIUM
     Indication: Rheumatoid arthritis
     Route: 048
  58. ALENDRONATE SODIUM [Suspect]
     Active Substance: ALENDRONATE SODIUM
     Route: 048
  59. PREDNISONE [Suspect]
     Active Substance: PREDNISONE
     Indication: Rheumatoid arthritis
     Route: 065
  60. PREDNISONE [Suspect]
     Active Substance: PREDNISONE
     Route: 048
  61. TUMS [Suspect]
     Active Substance: CALCIUM CARBONATE
     Indication: Product used for unknown indication
     Route: 065
  62. RITUXAN [Suspect]
     Active Substance: RITUXIMAB
     Indication: Rheumatoid arthritis
     Dosage: SOLUTION INTRAVENOUS
     Route: 058
  63. COSENTYX [Suspect]
     Active Substance: SECUKINUMAB
     Indication: Rheumatoid arthritis
     Dosage: INJECTION NOS
     Route: 065
  64. COSENTYX [Suspect]
     Active Substance: SECUKINUMAB
     Indication: Psoriatic arthropathy
     Route: 005
  65. COSENTYX [Suspect]
     Active Substance: SECUKINUMAB
     Route: 065
  66. FLUMETHASONE PIVALATE [Suspect]
     Active Substance: FLUMETHASONE PIVALATE
     Indication: Rheumatoid arthritis
     Route: 058
  67. OXYCODONE AND ACETAMINOPHEN [Suspect]
     Active Substance: ACETAMINOPHEN\OXYCODONE HYDROCHLORIDE
     Indication: Product used for unknown indication
     Route: 065
  68. PLAQUENIL [Suspect]
     Active Substance: HYDROXYCHLOROQUINE SULFATE
     Indication: Rheumatoid arthritis
     Route: 048
  69. PLAQUENIL [Suspect]
     Active Substance: HYDROXYCHLOROQUINE SULFATE
     Route: 048
  70. PLAQUENIL [Suspect]
     Active Substance: HYDROXYCHLOROQUINE SULFATE
     Route: 048
  71. PLAQUENIL [Suspect]
     Active Substance: HYDROXYCHLOROQUINE SULFATE
     Route: 048
  72. CETIRIZINE HYDROCHLORIDE [Suspect]
     Active Substance: CETIRIZINE HYDROCHLORIDE
     Indication: Rheumatoid arthritis
     Route: 048
  73. OXYCODONE [Suspect]
     Active Substance: OXYCODONE
     Indication: Product used for unknown indication
     Route: 042
  74. OXYCODONE [Suspect]
     Active Substance: OXYCODONE
     Dosage: 2 EVERY 1 DAY
     Route: 065
  75. OXYCODONE [Suspect]
     Active Substance: OXYCODONE
     Route: 065
  76. ACTIFED (PSEUDOEPHEDRINE HYDROCHLORIDE\TRIPROLIDINE HYDROCHLORIDE) [Suspect]
     Active Substance: PSEUDOEPHEDRINE HYDROCHLORIDE\TRIPROLIDINE HYDROCHLORIDE
     Indication: Product used for unknown indication
     Route: 065
  77. PANADOL [Suspect]
     Active Substance: ACETAMINOPHEN
     Indication: Rheumatoid arthritis
     Route: 065
  78. PANADOL [Suspect]
     Active Substance: ACETAMINOPHEN
     Indication: Product used for unknown indication
     Route: 016
  79. PANADOL [Suspect]
     Active Substance: ACETAMINOPHEN
     Route: 048
  80. GRAMICIDIN [Suspect]
     Active Substance: GRAMICIDIN
     Indication: Product used for unknown indication
     Route: 065
  81. VITAMIN B12 [Suspect]
     Active Substance: CYANOCOBALAMIN
     Indication: Product used for unknown indication
     Route: 065
  82. SULFAMETHOXAZOLE [Suspect]
     Active Substance: SULFAMETHOXAZOLE
     Indication: Product used for unknown indication
     Route: 065
  83. CIMZIA [Suspect]
     Active Substance: CERTOLIZUMAB PEGOL
     Indication: Rheumatoid arthritis
     Route: 058
  84. CIMZIA [Suspect]
     Active Substance: CERTOLIZUMAB PEGOL
     Indication: Psoriasis
     Route: 042
  85. CIMZIA [Suspect]
     Active Substance: CERTOLIZUMAB PEGOL
     Route: 058
  86. CIMZIA [Suspect]
     Active Substance: CERTOLIZUMAB PEGOL
     Route: 005
  87. CIMZIA [Suspect]
     Active Substance: CERTOLIZUMAB PEGOL
     Route: 058
  88. CIMZIA [Suspect]
     Active Substance: CERTOLIZUMAB PEGOL
     Route: 065
  89. CIMZIA [Suspect]
     Active Substance: CERTOLIZUMAB PEGOL
     Route: 058
  90. CIMZIA [Suspect]
     Active Substance: CERTOLIZUMAB PEGOL
     Route: 058
  91. CIMZIA [Suspect]
     Active Substance: CERTOLIZUMAB PEGOL
     Route: 058
  92. CIMZIA [Suspect]
     Active Substance: CERTOLIZUMAB PEGOL
     Route: 058
  93. CIMZIA [Suspect]
     Active Substance: CERTOLIZUMAB PEGOL
     Route: 065
  94. CIMZIA [Suspect]
     Active Substance: CERTOLIZUMAB PEGOL
     Route: 058
  95. HYDROCORTISONE [Suspect]
     Active Substance: HYDROCORTISONE
     Indication: Rheumatoid arthritis
     Route: 061
  96. HYDROCORTISONE [Suspect]
     Active Substance: HYDROCORTISONE
     Route: 048
  97. HYDROCORTISONE [Suspect]
     Active Substance: HYDROCORTISONE
     Route: 058
  98. HYDROCORTISONE [Suspect]
     Active Substance: HYDROCORTISONE
     Route: 003
  99. HYDROCORTISONE [Suspect]
     Active Substance: HYDROCORTISONE
     Route: 058
  100. PSEUDOEPHEDRINE [Suspect]
     Active Substance: PSEUDOEPHEDRINE
     Indication: Rheumatoid arthritis
     Route: 065
  101. PSEUDOEPHEDRINE [Suspect]
     Active Substance: PSEUDOEPHEDRINE
     Route: 048
  102. PSEUDOEPHEDRINE [Suspect]
     Active Substance: PSEUDOEPHEDRINE
     Route: 065
  103. METHOTREXATE [Suspect]
     Active Substance: METHOTREXATE
     Indication: Rheumatoid arthritis
     Route: 048
  104. METHOTREXATE [Suspect]
     Active Substance: METHOTREXATE
     Route: 058
  105. METHOTREXATE [Suspect]
     Active Substance: METHOTREXATE
     Route: 013
  106. METHOTREXATE [Suspect]
     Active Substance: METHOTREXATE
     Route: 058
  107. METHOTREXATE [Suspect]
     Active Substance: METHOTREXATE
     Route: 048
  108. METHOTREXATE [Suspect]
     Active Substance: METHOTREXATE
     Route: 048
  109. METHOTREXATE [Suspect]
     Active Substance: METHOTREXATE
     Route: 048
  110. METHOTREXATE [Suspect]
     Active Substance: METHOTREXATE
     Route: 065
  111. METHOTREXATE [Suspect]
     Active Substance: METHOTREXATE
     Dosage: UNK
     Route: 065
  112. METHOTREXATE [Suspect]
     Active Substance: METHOTREXATE
     Route: 058
  113. METHOTREXATE [Suspect]
     Active Substance: METHOTREXATE
     Route: 058
  114. METHOTREXATE [Suspect]
     Active Substance: METHOTREXATE
     Route: 013
  115. METHOTREXATE [Suspect]
     Active Substance: METHOTREXATE
     Route: 048
  116. METHOTREXATE [Suspect]
     Active Substance: METHOTREXATE
     Route: 065
  117. METHOTREXATE [Suspect]
     Active Substance: METHOTREXATE
     Route: 013
  118. METHOTREXATE [Suspect]
     Active Substance: METHOTREXATE
     Route: 048
  119. METHOTREXATE [Suspect]
     Active Substance: METHOTREXATE
     Route: 048
  120. METHOTREXATE [Suspect]
     Active Substance: METHOTREXATE
     Dosage: 25 UNK
     Route: 048
  121. METHOTREXATE [Suspect]
     Active Substance: METHOTREXATE
     Route: 065
  122. METHOTREXATE [Suspect]
     Active Substance: METHOTREXATE
     Route: 048
  123. METHOTREXATE [Suspect]
     Active Substance: METHOTREXATE
     Route: 058
  124. METHOTREXATE [Suspect]
     Active Substance: METHOTREXATE
     Route: 048
  125. METHOTREXATE [Suspect]
     Active Substance: METHOTREXATE
     Route: 065
  126. METHOTREXATE [Suspect]
     Active Substance: METHOTREXATE
     Route: 048
  127. METHOTREXATE [Suspect]
     Active Substance: METHOTREXATE
     Route: 048
  128. METHOTREXATE [Suspect]
     Active Substance: METHOTREXATE
     Route: 058
  129. METHOTREXATE [Suspect]
     Active Substance: METHOTREXATE
     Route: 065
  130. METHOTREXATE [Suspect]
     Active Substance: METHOTREXATE
     Route: 058
  131. ERELZI [Suspect]
     Active Substance: ETANERCEPT-SZZS
     Indication: Rheumatoid arthritis
     Route: 065
  132. ERELZI [Suspect]
     Active Substance: ETANERCEPT-SZZS
     Route: 058
  133. ERELZI [Suspect]
     Active Substance: ETANERCEPT-SZZS
     Route: 058
  134. SOLU-MEDROL [Suspect]
     Active Substance: METHYLPREDNISOLONE SODIUM SUCCINATE
     Indication: Product used for unknown indication
     Route: 065
  135. FOLIC ACID [Suspect]
     Active Substance: FOLIC ACID
     Indication: Rheumatoid arthritis
     Route: 058
  136. FOLIC ACID [Suspect]
     Active Substance: FOLIC ACID
     Route: 058
  137. FOLIC ACID [Suspect]
     Active Substance: FOLIC ACID
     Route: 065
  138. FOLIC ACID [Suspect]
     Active Substance: FOLIC ACID
     Route: 048
  139. FOLIC ACID [Suspect]
     Active Substance: FOLIC ACID
     Route: 048
  140. FOLIC ACID [Suspect]
     Active Substance: FOLIC ACID
     Route: 065
  141. FOLIC ACID [Suspect]
     Active Substance: FOLIC ACID
     Route: 048
  142. FOLIC ACID [Suspect]
     Active Substance: FOLIC ACID
     Route: 048
  143. FOLIC ACID [Suspect]
     Active Substance: FOLIC ACID
     Route: 048
  144. FOLIC ACID [Suspect]
     Active Substance: FOLIC ACID
     Route: 065
  145. FOLIC ACID [Suspect]
     Active Substance: FOLIC ACID
     Route: 048
  146. FOLIC ACID [Suspect]
     Active Substance: FOLIC ACID
     Route: 048
  147. FOLIC ACID [Suspect]
     Active Substance: FOLIC ACID
     Route: 065
  148. FOLIC ACID [Suspect]
     Active Substance: FOLIC ACID
     Route: 065
  149. FOLIC ACID [Suspect]
     Active Substance: FOLIC ACID
     Route: 065
  150. FOLIC ACID [Suspect]
     Active Substance: FOLIC ACID
     Route: 048
  151. FOLIC ACID [Suspect]
     Active Substance: FOLIC ACID
     Route: 065
  152. FOLIC ACID [Suspect]
     Active Substance: FOLIC ACID
     Route: 058
  153. FOLIC ACID [Suspect]
     Active Substance: FOLIC ACID
     Route: 065
  154. FOLIC ACID [Suspect]
     Active Substance: FOLIC ACID
     Route: 065
  155. FOLIC ACID [Suspect]
     Active Substance: FOLIC ACID
     Route: 065
  156. FOLIC ACID [Suspect]
     Active Substance: FOLIC ACID
     Route: 048
  157. FOLIC ACID [Suspect]
     Active Substance: FOLIC ACID
     Route: 065
  158. FLUMETHASONE [Suspect]
     Active Substance: FLUMETHASONE
     Indication: Rheumatoid arthritis
     Route: 058
  159. DIETARY SUPPLEMENT\HERBALS [Suspect]
     Active Substance: DIETARY SUPPLEMENT\HERBALS
     Indication: Product used for unknown indication
     Route: 048
  160. HUMIRA [Suspect]
     Active Substance: ADALIMUMAB
     Indication: Rheumatoid arthritis
     Route: 058
  161. HUMIRA [Suspect]
     Active Substance: ADALIMUMAB
     Indication: Psoriatic arthropathy
     Route: 057
  162. HUMIRA [Suspect]
     Active Substance: ADALIMUMAB
     Route: 058
  163. HUMIRA [Suspect]
     Active Substance: ADALIMUMAB
     Route: 058
  164. DOXYCYCLINE HYCLATE [Suspect]
     Active Substance: DOXYCYCLINE HYCLATE
     Indication: Product used for unknown indication
     Route: 065
  165. DICLOFENAC [Suspect]
     Active Substance: DICLOFENAC
     Indication: Product used for unknown indication
     Route: 065
  166. DOXYCYCLINE [Suspect]
     Active Substance: DOXYCYCLINE
     Indication: Product used for unknown indication
     Route: 058
  167. DOXYCYCLINE [Suspect]
     Active Substance: DOXYCYCLINE
     Route: 065
  168. DOXYCYCLINE [Suspect]
     Active Substance: DOXYCYCLINE
     Route: 058
  169. CETIRIZINE HYDROCHLORIDE\PSEUDOEPHEDRINE HYDROCHLORIDE [Suspect]
     Active Substance: CETIRIZINE HYDROCHLORIDE\PSEUDOEPHEDRINE HYDROCHLORIDE
     Indication: Rheumatoid arthritis
     Dosage: EXTENDED RELEASE
     Route: 065
  170. CETIRIZINE HYDROCHLORIDE\PSEUDOEPHEDRINE HYDROCHLORIDE [Suspect]
     Active Substance: CETIRIZINE HYDROCHLORIDE\PSEUDOEPHEDRINE HYDROCHLORIDE
     Dosage: EXTENDED RELEASE
     Route: 048
  171. CETIRIZINE HYDROCHLORIDE\PSEUDOEPHEDRINE HYDROCHLORIDE [Suspect]
     Active Substance: CETIRIZINE HYDROCHLORIDE\PSEUDOEPHEDRINE HYDROCHLORIDE
     Route: 065
  172. CETIRIZINE HYDROCHLORIDE\PSEUDOEPHEDRINE HYDROCHLORIDE [Suspect]
     Active Substance: CETIRIZINE HYDROCHLORIDE\PSEUDOEPHEDRINE HYDROCHLORIDE
     Route: 048
  173. CETIRIZINE HYDROCHLORIDE\PSEUDOEPHEDRINE HYDROCHLORIDE [Suspect]
     Active Substance: CETIRIZINE HYDROCHLORIDE\PSEUDOEPHEDRINE HYDROCHLORIDE
     Dosage: EXTENDED RELEASE
     Route: 048
  174. SULFASALAZINE [Suspect]
     Active Substance: SULFASALAZINE
     Indication: Rheumatoid arthritis
     Route: 048
  175. SULFASALAZINE [Suspect]
     Active Substance: SULFASALAZINE
     Indication: Psoriatic arthropathy
     Route: 048
  176. SULFASALAZINE [Suspect]
     Active Substance: SULFASALAZINE
     Route: 048
  177. SULFASALAZINE [Suspect]
     Active Substance: SULFASALAZINE
     Route: 048
  178. SULFASALAZINE [Suspect]
     Active Substance: SULFASALAZINE
     Route: 048
  179. SULFASALAZINE [Suspect]
     Active Substance: SULFASALAZINE
     Route: 048
  180. DICLOFENAC [Suspect]
     Active Substance: DICLOFENAC
     Indication: Product used for unknown indication
     Route: 065
  181. VEDOLIZUMAB [Suspect]
     Active Substance: VEDOLIZUMAB
     Indication: Product used for unknown indication
     Dosage: POWDER FOR SOLUTION INTRAVENOUS
     Route: 042
  182. CODEINE [Suspect]
     Active Substance: CODEINE
     Indication: Product used for unknown indication
     Route: 065
  183. PREDNISONE [Suspect]
     Active Substance: PREDNISONE
     Indication: Rheumatoid arthritis
     Route: 048
  184. PREDNISONE [Suspect]
     Active Substance: PREDNISONE
     Route: 065
  185. PREDNISONE [Suspect]
     Active Substance: PREDNISONE
     Route: 065
  186. PREDNISONE [Suspect]
     Active Substance: PREDNISONE
     Route: 048
  187. PREDNISONE [Suspect]
     Active Substance: PREDNISONE
     Route: 048
  188. PREDNISONE [Suspect]
     Active Substance: PREDNISONE
     Route: 042
  189. PREDNISONE [Suspect]
     Active Substance: PREDNISONE
     Route: 065
  190. PREDNISONE [Suspect]
     Active Substance: PREDNISONE
     Route: 048
  191. PREDNISONE [Suspect]
     Active Substance: PREDNISONE
     Route: 048
  192. PHTHALYLSULFATHIAZOLE [Suspect]
     Active Substance: PHTHALYLSULFATHIAZOLE
     Indication: Rheumatoid arthritis
     Route: 042
  193. PHTHALYLSULFATHIAZOLE [Suspect]
     Active Substance: PHTHALYLSULFATHIAZOLE
     Route: 048
  194. PHTHALYLSULFATHIAZOLE [Suspect]
     Active Substance: PHTHALYLSULFATHIAZOLE
     Route: 048
  195. PHTHALYLSULFATHIAZOLE [Suspect]
     Active Substance: PHTHALYLSULFATHIAZOLE
     Route: 048
  196. PHTHALYLSULFATHIAZOLE [Suspect]
     Active Substance: PHTHALYLSULFATHIAZOLE
     Route: 016
  197. PHTHALYLSULFATHIAZOLE [Suspect]
     Active Substance: PHTHALYLSULFATHIAZOLE
     Route: 048
  198. PHTHALYLSULFATHIAZOLE [Suspect]
     Active Substance: PHTHALYLSULFATHIAZOLE
     Route: 065
  199. PHTHALYLSULFATHIAZOLE [Suspect]
     Active Substance: PHTHALYLSULFATHIAZOLE
     Route: 048
  200. PHTHALYLSULFATHIAZOLE [Suspect]
     Active Substance: PHTHALYLSULFATHIAZOLE
     Route: 048
  201. ARAVA [Suspect]
     Active Substance: LEFLUNOMIDE
     Indication: Rheumatoid arthritis
     Route: 048
  202. ARAVA [Suspect]
     Active Substance: LEFLUNOMIDE
     Route: 048
  203. ARAVA [Suspect]
     Active Substance: LEFLUNOMIDE
     Route: 048
  204. ARAVA [Suspect]
     Active Substance: LEFLUNOMIDE
     Route: 048
  205. ARAVA [Suspect]
     Active Substance: LEFLUNOMIDE
     Route: 048
  206. ARAVA [Suspect]
     Active Substance: LEFLUNOMIDE
     Route: 048
  207. ARAVA [Suspect]
     Active Substance: LEFLUNOMIDE
     Route: 048
  208. ADALIMUMAB [Suspect]
     Active Substance: ADALIMUMAB
     Indication: Rheumatoid arthritis
     Route: 058
  209. ADALIMUMAB [Suspect]
     Active Substance: ADALIMUMAB
     Indication: Psoriatic arthropathy
     Route: 058
  210. ADALIMUMAB [Suspect]
     Active Substance: ADALIMUMAB
     Route: 058
  211. ADALIMUMAB [Suspect]
     Active Substance: ADALIMUMAB
     Dosage: SOLUTION SUBCUTANEOUS
     Route: 048
  212. PSEUDOEPHEDRINE [Suspect]
     Active Substance: PSEUDOEPHEDRINE
     Indication: Product used for unknown indication
     Route: 065
  213. PSEUDOEPHEDRINE [Suspect]
     Active Substance: PSEUDOEPHEDRINE
     Route: 065
  214. NEOMYCIN [Suspect]
     Active Substance: NEOMYCIN
     Indication: Product used for unknown indication
     Route: 065
  215. MYCOPHENOLATE MOFETIL [Suspect]
     Active Substance: MYCOPHENOLATE MOFETIL
     Indication: Product used for unknown indication
     Route: 065
  216. REMICADE [Suspect]
     Active Substance: INFLIXIMAB
     Indication: Arthropathy
     Dosage: POWDER FOR SOLUTION INTRAVENOUS
     Route: 065
  217. REMICADE [Suspect]
     Active Substance: INFLIXIMAB
     Indication: Crohn^s disease
     Route: 042
  218. REMICADE [Suspect]
     Active Substance: INFLIXIMAB
     Indication: Rheumatoid arthritis
     Dosage: POWDER FOR SOLUTION INTRAVENOUS
     Route: 042
  219. REMICADE [Suspect]
     Active Substance: INFLIXIMAB
     Indication: Colitis ulcerative
     Route: 042
  220. REMICADE [Suspect]
     Active Substance: INFLIXIMAB
     Indication: Ankylosing spondylitis
     Route: 042
  221. REMICADE [Suspect]
     Active Substance: INFLIXIMAB
     Indication: Psoriasis
     Route: 042
  222. REMICADE [Suspect]
     Active Substance: INFLIXIMAB
     Dosage: POWDER FOR SOLUTION INTRAVENOUS
     Route: 042
  223. REMICADE [Suspect]
     Active Substance: INFLIXIMAB
     Dosage: POWDER FOR SOLUTION INTRAVENOUS
     Route: 065
  224. TOPICORT [Suspect]
     Active Substance: DESOXIMETASONE
     Indication: Rheumatoid arthritis
     Route: 003
  225. TOPICORT [Suspect]
     Active Substance: DESOXIMETASONE
     Route: 048
  226. TOPICORT [Suspect]
     Active Substance: DESOXIMETASONE
     Route: 058
  227. TOPICORT [Suspect]
     Active Substance: DESOXIMETASONE
     Indication: Rheumatoid arthritis
     Route: 048
  228. TOPICORT [Suspect]
     Active Substance: DESOXIMETASONE
     Route: 058
  229. TOPICORT [Suspect]
     Active Substance: DESOXIMETASONE
     Route: 061
  230. TOPICORT [Suspect]
     Active Substance: DESOXIMETASONE
     Route: 057
  231. TOPICORT [Suspect]
     Active Substance: DESOXIMETASONE
     Route: 003
  232. FLUMETHASONE PIVALATE [Suspect]
     Active Substance: FLUMETHASONE PIVALATE
     Indication: Rheumatoid arthritis
     Route: 003
  233. FLUMETHASONE PIVALATE [Suspect]
     Active Substance: FLUMETHASONE PIVALATE
     Route: 065
  234. FLUMETHASONE PIVALATE [Suspect]
     Active Substance: FLUMETHASONE PIVALATE
     Route: 058
  235. VITAMIN D3 [Suspect]
     Active Substance: CHOLECALCIFEROL
     Indication: Product used for unknown indication
     Route: 065
  236. VITAMIN D3 [Suspect]
     Active Substance: CHOLECALCIFEROL
     Route: 016
  237. PREGABALIN [Suspect]
     Active Substance: PREGABALIN
     Indication: Product used for unknown indication
     Route: 065
  238. LEFLUNOMIDE [Suspect]
     Active Substance: LEFLUNOMIDE
     Indication: Rheumatoid arthritis
     Route: 048
  239. LEFLUNOMIDE [Suspect]
     Active Substance: LEFLUNOMIDE
     Route: 048
  240. LEFLUNOMIDE [Suspect]
     Active Substance: LEFLUNOMIDE
     Route: 048
  241. LEFLUNOMIDE [Suspect]
     Active Substance: LEFLUNOMIDE
     Route: 048
  242. METHOTREXATE SODIUM [Suspect]
     Active Substance: METHOTREXATE SODIUM
     Indication: Rheumatoid arthritis
     Route: 065
  243. METHOTREXATE SODIUM [Suspect]
     Active Substance: METHOTREXATE SODIUM
     Route: 065
  244. METHOTREXATE SODIUM [Suspect]
     Active Substance: METHOTREXATE SODIUM
     Route: 065
  245. METHOTREXATE SODIUM [Suspect]
     Active Substance: METHOTREXATE SODIUM
     Route: 013
  246. METHOTREXATE SODIUM [Suspect]
     Active Substance: METHOTREXATE SODIUM
     Route: 048
  247. METHOTREXATE SODIUM [Suspect]
     Active Substance: METHOTREXATE SODIUM
     Route: 058
  248. METHOTREXATE SODIUM [Suspect]
     Active Substance: METHOTREXATE SODIUM
     Route: 065
  249. METHOTREXATE SODIUM [Suspect]
     Active Substance: METHOTREXATE SODIUM
     Route: 013
  250. METHOTREXATE SODIUM [Suspect]
     Active Substance: METHOTREXATE SODIUM
     Route: 048
  251. METHOTREXATE SODIUM [Suspect]
     Active Substance: METHOTREXATE SODIUM
     Route: 048
  252. DILTIAZEM [Suspect]
     Active Substance: DILTIAZEM
     Indication: Product used for unknown indication
     Route: 065
  253. HYDROXYCHLOROQUINE [Suspect]
     Active Substance: HYDROXYCHLOROQUINE
     Indication: Rheumatoid arthritis
     Route: 048
  254. HYDROXYCHLOROQUINE [Suspect]
     Active Substance: HYDROXYCHLOROQUINE
     Dosage: 200 MG, BID
     Route: 065
  255. HYDROXYCHLOROQUINE [Suspect]
     Active Substance: HYDROXYCHLOROQUINE
     Route: 048
  256. HYDROXYCHLOROQUINE [Suspect]
     Active Substance: HYDROXYCHLOROQUINE
     Dosage: 2 EVERY 1 DAYS
     Route: 065
  257. HYDROXYCHLOROQUINE [Suspect]
     Active Substance: HYDROXYCHLOROQUINE
     Route: 048
  258. HYDROXYCHLOROQUINE [Suspect]
     Active Substance: HYDROXYCHLOROQUINE
     Route: 048
  259. HYDROXYCHLOROQUINE [Suspect]
     Active Substance: HYDROXYCHLOROQUINE
     Route: 048
  260. HYDROXYCHLOROQUINE [Suspect]
     Active Substance: HYDROXYCHLOROQUINE
     Route: 048
  261. HYDROXYCHLOROQUINE [Suspect]
     Active Substance: HYDROXYCHLOROQUINE
     Route: 065
  262. HYDROXYCHLOROQUINE [Suspect]
     Active Substance: HYDROXYCHLOROQUINE
     Route: 065
  263. CETIRIZINE HYDROCHLORIDE [Suspect]
     Active Substance: CETIRIZINE HYDROCHLORIDE
     Indication: Rheumatoid arthritis
     Route: 065
  264. CETIRIZINE HYDROCHLORIDE [Suspect]
     Active Substance: CETIRIZINE HYDROCHLORIDE
     Route: 048
  265. CETIRIZINE HYDROCHLORIDE [Suspect]
     Active Substance: CETIRIZINE HYDROCHLORIDE
     Route: 048
  266. CETIRIZINE HYDROCHLORIDE [Suspect]
     Active Substance: CETIRIZINE HYDROCHLORIDE
     Route: 048
  267. CETIRIZINE HYDROCHLORIDE [Suspect]
     Active Substance: CETIRIZINE HYDROCHLORIDE
     Route: 048
  268. CETIRIZINE HYDROCHLORIDE [Suspect]
     Active Substance: CETIRIZINE HYDROCHLORIDE
     Route: 048
  269. OXYCODONE TEREPHTHALATE [Suspect]
     Active Substance: OXYCODONE TEREPHTHALATE
     Indication: Product used for unknown indication
     Route: 065
  270. OXYCODONE TEREPHTHALATE [Suspect]
     Active Substance: OXYCODONE TEREPHTHALATE
     Route: 016
  271. PANTOPRAZOLE SODIUM [Suspect]
     Active Substance: PANTOPRAZOLE SODIUM
     Indication: Product used for unknown indication
     Route: 016
  272. CHLORAPREP [Suspect]
     Active Substance: CHLORHEXIDINE GLUCONATE\ISOPROPYL ALCOHOL
     Indication: Product used for unknown indication
     Route: 061
  273. SIMPONI [Suspect]
     Active Substance: GOLIMUMAB
     Indication: Psoriatic arthropathy
     Route: 058
  274. SIMPONI [Suspect]
     Active Substance: GOLIMUMAB
     Indication: Rheumatoid arthritis
     Dosage: SOLUTION SUBCUTANEOUS
     Route: 042
  275. SIMPONI [Suspect]
     Active Substance: GOLIMUMAB
     Route: 052
  276. SIMPONI [Suspect]
     Active Substance: GOLIMUMAB
     Route: 058
  277. SIMPONI [Suspect]
     Active Substance: GOLIMUMAB
     Dosage: SOLUTION SUBCUTANEOUS
     Route: 058
  278. SIMPONI [Suspect]
     Active Substance: GOLIMUMAB
     Route: 058
  279. SIMPONI [Suspect]
     Active Substance: GOLIMUMAB
     Route: 065
  280. ISOPROPYL ALCOHOL [Suspect]
     Active Substance: ISOPROPYL ALCOHOL
     Indication: Product used for unknown indication
     Dosage: LIQUID
     Route: 061
  281. SULFASALAZINE [Suspect]
     Active Substance: SULFASALAZINE
     Indication: Product used for unknown indication
     Route: 048
  282. SULFASALAZINE [Suspect]
     Active Substance: SULFASALAZINE
     Indication: Rheumatoid arthritis
     Route: 065
  283. SULFASALAZINE [Suspect]
     Active Substance: SULFASALAZINE
     Route: 048
  284. SULFASALAZINE [Suspect]
     Active Substance: SULFASALAZINE
     Route: 048
  285. SULFASALAZINE [Suspect]
     Active Substance: SULFASALAZINE
     Route: 048
  286. SULFASALAZINE [Suspect]
     Active Substance: SULFASALAZINE
     Route: 065
  287. SULFASALAZINE [Suspect]
     Active Substance: SULFASALAZINE
     Route: 048
  288. SULFASALAZINE [Suspect]
     Active Substance: SULFASALAZINE
     Route: 065
  289. SULFASALAZINE [Suspect]
     Active Substance: SULFASALAZINE
     Route: 048
  290. SULFASALAZINE [Suspect]
     Active Substance: SULFASALAZINE
     Route: 065
  291. SULFASALAZINE [Suspect]
     Active Substance: SULFASALAZINE
     Route: 048
  292. SULFASALAZINE [Suspect]
     Active Substance: SULFASALAZINE
     Route: 065
  293. SULFASALAZINE [Suspect]
     Active Substance: SULFASALAZINE
     Route: 048
  294. TRIAMCINOLONE ACETONIDE [Suspect]
     Active Substance: TRIAMCINOLONE ACETONIDE
     Indication: Rheumatoid arthritis
     Dosage: SUSPENSION
     Route: 014
  295. CONTAC [Suspect]
     Active Substance: ACETAMINOPHEN\PHENYLEPHRINE HYDROCHLORIDE
     Indication: Off label use
     Route: 048
  296. CONTAC [Suspect]
     Active Substance: ACETAMINOPHEN\PHENYLEPHRINE HYDROCHLORIDE
     Indication: Rheumatoid arthritis
     Route: 016
  297. CONTAC [Suspect]
     Active Substance: ACETAMINOPHEN\PHENYLEPHRINE HYDROCHLORIDE
     Route: 048
  298. CONTAC [Suspect]
     Active Substance: ACETAMINOPHEN\PHENYLEPHRINE HYDROCHLORIDE
     Route: 065
  299. CONTAC [Suspect]
     Active Substance: ACETAMINOPHEN\PHENYLEPHRINE HYDROCHLORIDE
     Route: 065
  300. CONTAC [Suspect]
     Active Substance: ACETAMINOPHEN\PHENYLEPHRINE HYDROCHLORIDE
     Route: 048
  301. CONTAC [Suspect]
     Active Substance: ACETAMINOPHEN\PHENYLEPHRINE HYDROCHLORIDE
     Route: 048
  302. CONTAC [Suspect]
     Active Substance: ACETAMINOPHEN\PHENYLEPHRINE HYDROCHLORIDE
     Route: 048
  303. TRIPROLIDINE HYDROCHLORIDE [Suspect]
     Active Substance: TRIPROLIDINE HYDROCHLORIDE
     Indication: Product used for unknown indication
     Route: 065
  304. RAMIPRIL [Suspect]
     Active Substance: RAMIPRIL
     Indication: Product used for unknown indication
     Route: 065
  305. DESOXIMETASONE [Suspect]
     Active Substance: DESOXIMETASONE
     Indication: Rheumatoid arthritis
     Route: 042
  306. DESOXIMETASONE [Suspect]
     Active Substance: DESOXIMETASONE
     Route: 003
  307. DESOXIMETASONE [Suspect]
     Active Substance: DESOXIMETASONE
     Route: 048
  308. DESOXIMETASONE [Suspect]
     Active Substance: DESOXIMETASONE
     Route: 058
  309. DESOXIMETASONE [Suspect]
     Active Substance: DESOXIMETASONE
     Route: 058
  310. DESOXIMETASONE [Suspect]
     Active Substance: DESOXIMETASONE
     Route: 061
  311. DESOXIMETASONE [Suspect]
     Active Substance: DESOXIMETASONE
     Route: 058
  312. DESOXIMETASONE [Suspect]
     Active Substance: DESOXIMETASONE
     Route: 061
  313. DESOXIMETASONE [Suspect]
     Active Substance: DESOXIMETASONE
     Route: 058
  314. DESOXIMETASONE [Suspect]
     Active Substance: DESOXIMETASONE
     Route: 048
  315. DESOXIMETASONE [Suspect]
     Active Substance: DESOXIMETASONE
     Dosage: 250.0
     Route: 048
  316. DESOXIMETASONE [Suspect]
     Active Substance: DESOXIMETASONE
     Route: 061
  317. DESOXIMETASONE [Suspect]
     Active Substance: DESOXIMETASONE
     Route: 048
  318. DESOXIMETASONE [Suspect]
     Active Substance: DESOXIMETASONE
     Route: 003
  319. DESOXIMETASONE [Suspect]
     Active Substance: DESOXIMETASONE
     Route: 065
  320. DESOXIMETASONE [Suspect]
     Active Substance: DESOXIMETASONE
     Route: 065
  321. DESOXIMETASONE [Suspect]
     Active Substance: DESOXIMETASONE
     Route: 065
  322. DESOXIMETASONE [Suspect]
     Active Substance: DESOXIMETASONE
     Route: 042
  323. DESOXIMETASONE [Suspect]
     Active Substance: DESOXIMETASONE
     Dosage: 250.0
     Route: 003
  324. DESOXIMETASONE [Suspect]
     Active Substance: DESOXIMETASONE
     Route: 058
  325. DESOXIMETASONE [Suspect]
     Active Substance: DESOXIMETASONE
     Route: 048
  326. DESOXIMETASONE [Suspect]
     Active Substance: DESOXIMETASONE
     Route: 003
  327. DESOXIMETASONE [Suspect]
     Active Substance: DESOXIMETASONE
     Route: 003
  328. DESOXIMETASONE [Suspect]
     Active Substance: DESOXIMETASONE
     Route: 048
  329. DESOXIMETASONE [Suspect]
     Active Substance: DESOXIMETASONE
     Route: 048
  330. PSEUDOEPHEDRINE HYDROCHLORIDE [Suspect]
     Active Substance: PSEUDOEPHEDRINE HYDROCHLORIDE
     Indication: Rheumatoid arthritis
     Route: 065
  331. PSEUDOEPHEDRINE HYDROCHLORIDE [Suspect]
     Active Substance: PSEUDOEPHEDRINE HYDROCHLORIDE
     Route: 065
  332. PSEUDOEPHEDRINE HYDROCHLORIDE [Suspect]
     Active Substance: PSEUDOEPHEDRINE HYDROCHLORIDE
     Route: 065
  333. VOLTAREN [Suspect]
     Active Substance: DICLOFENAC SODIUM
     Indication: Rheumatoid arthritis
     Route: 065
  334. VOLTAREN [Suspect]
     Active Substance: DICLOFENAC SODIUM
     Indication: Product used for unknown indication
     Route: 065
  335. VOLTAREN [Suspect]
     Active Substance: DICLOFENAC SODIUM
     Route: 048
  336. VOLTAREN [Suspect]
     Active Substance: DICLOFENAC SODIUM
     Route: 048
  337. PANTOPRAZOLE SODIUM ANHYDROUS [Suspect]
     Active Substance: PANTOPRAZOLE SODIUM ANHYDROUS
     Indication: Product used for unknown indication
     Route: 016
  338. SARILUMAB [Suspect]
     Active Substance: SARILUMAB
     Indication: Rheumatoid arthritis
     Route: 065
  339. COSENTYX [Suspect]
     Active Substance: SECUKINUMAB
     Indication: Psoriatic arthropathy
     Route: 065
  340. COSENTYX [Suspect]
     Active Substance: SECUKINUMAB
     Route: 065
  341. NAPROXEN [Suspect]
     Active Substance: NAPROXEN
     Indication: Product used for unknown indication
     Route: 065
  342. NAPROXEN [Suspect]
     Active Substance: NAPROXEN
     Indication: Rheumatoid arthritis
     Route: 065
  343. NAPROXEN [Suspect]
     Active Substance: NAPROXEN
     Route: 065
  344. ACETAMINOPHEN AND CODEINE [Suspect]
     Active Substance: ACETAMINOPHEN\CODEINE PHOSPHATE
     Indication: Product used for unknown indication
     Route: 065
  345. OTEZLA [Suspect]
     Active Substance: APREMILAST
     Indication: Product used for unknown indication
     Route: 048
  346. OTEZLA [Suspect]
     Active Substance: APREMILAST
     Route: 042
  347. OTEZLA [Suspect]
     Active Substance: APREMILAST
     Route: 048
  348. OTEZLA [Suspect]
     Active Substance: APREMILAST
     Dosage: 2 EVERY 1 DAY
     Route: 048
  349. OTEZLA [Suspect]
     Active Substance: APREMILAST
     Route: 048
  350. OTEZLA [Suspect]
     Active Substance: APREMILAST
     Route: 065
  351. ETANERCEPT [Suspect]
     Active Substance: ETANERCEPT
     Indication: Rheumatoid arthritis
     Route: 058
  352. ACTEMRA [Suspect]
     Active Substance: TOCILIZUMAB
     Indication: Rheumatoid arthritis
     Route: 042
  353. ACTEMRA [Suspect]
     Active Substance: TOCILIZUMAB
     Route: 058
  354. ACTEMRA [Suspect]
     Active Substance: TOCILIZUMAB
     Route: 042
  355. ACTEMRA [Suspect]
     Active Substance: TOCILIZUMAB
     Route: 061
  356. ACTEMRA [Suspect]
     Active Substance: TOCILIZUMAB
     Route: 048
  357. ACTEMRA [Suspect]
     Active Substance: TOCILIZUMAB
     Route: 058
  358. ACTEMRA [Suspect]
     Active Substance: TOCILIZUMAB
     Route: 042
  359. ACTEMRA [Suspect]
     Active Substance: TOCILIZUMAB
     Route: 058
  360. ACTEMRA [Suspect]
     Active Substance: TOCILIZUMAB
     Route: 058
  361. ACTEMRA [Suspect]
     Active Substance: TOCILIZUMAB
     Route: 042
  362. ACTEMRA [Suspect]
     Active Substance: TOCILIZUMAB
     Route: 042
  363. ACTEMRA [Suspect]
     Active Substance: TOCILIZUMAB
     Route: 042
  364. ACTEMRA [Suspect]
     Active Substance: TOCILIZUMAB
     Route: 058
  365. ACTEMRA [Suspect]
     Active Substance: TOCILIZUMAB
     Route: 042
  366. ACTEMRA [Suspect]
     Active Substance: TOCILIZUMAB
     Route: 042
  367. ACTEMRA [Suspect]
     Active Substance: TOCILIZUMAB
     Route: 048
  368. ACTEMRA [Suspect]
     Active Substance: TOCILIZUMAB
     Route: 058
  369. ACTEMRA [Suspect]
     Active Substance: TOCILIZUMAB
     Route: 042
  370. ALENDRONIC ACID [Suspect]
     Active Substance: ALENDRONIC ACID
     Indication: Rheumatoid arthritis
     Route: 048
  371. ALENDRONIC ACID [Suspect]
     Active Substance: ALENDRONIC ACID
     Route: 048
  372. DICLOFENAC DIETHYLAMINE [Suspect]
     Active Substance: DICLOFENAC DIETHYLAMINE
     Indication: Product used for unknown indication
     Route: 065
  373. DICLOFENAC DIETHYLAMINE [Suspect]
     Active Substance: DICLOFENAC DIETHYLAMINE
     Indication: Rheumatoid arthritis
     Route: 065
  374. CORTISONE [Suspect]
     Active Substance: CORTISONE
     Indication: Rheumatoid arthritis
     Route: 061
  375. CORTISONE [Suspect]
     Active Substance: CORTISONE
     Route: 003
  376. CORTISONE [Suspect]
     Active Substance: CORTISONE
     Route: 061
  377. CORTISONE [Suspect]
     Active Substance: CORTISONE
     Route: 058
  378. CORTISONE [Suspect]
     Active Substance: CORTISONE
     Route: 003
  379. CORTISONE [Suspect]
     Active Substance: CORTISONE
     Route: 048
  380. CORTISONE [Suspect]
     Active Substance: CORTISONE
     Route: 058
  381. CORTISONE [Suspect]
     Active Substance: CORTISONE
     Route: 065
  382. ENBREL [Suspect]
     Active Substance: ETANERCEPT
     Indication: Rheumatoid arthritis
     Route: 058
  383. ENBREL [Suspect]
     Active Substance: ETANERCEPT
     Indication: Product used for unknown indication
     Route: 065
  384. ENBREL [Suspect]
     Active Substance: ETANERCEPT
     Indication: Psoriatic arthropathy
     Route: 058
  385. ENBREL [Suspect]
     Active Substance: ETANERCEPT
     Route: 058
  386. ENBREL [Suspect]
     Active Substance: ETANERCEPT
     Route: 058
  387. ORENCIA [Suspect]
     Active Substance: ABATACEPT
     Indication: Rheumatoid arthritis
     Route: 067
  388. ORENCIA [Suspect]
     Active Substance: ABATACEPT
     Route: 058
  389. ORENCIA [Suspect]
     Active Substance: ABATACEPT
     Route: 058
  390. ORENCIA [Suspect]
     Active Substance: ABATACEPT
     Route: 065
  391. ORENCIA [Suspect]
     Active Substance: ABATACEPT
     Route: 058
  392. ORENCIA [Suspect]
     Active Substance: ABATACEPT
     Route: 058
  393. ORENCIA [Suspect]
     Active Substance: ABATACEPT
     Route: 042
  394. ORENCIA [Suspect]
     Active Substance: ABATACEPT
     Route: 042
  395. ORENCIA [Suspect]
     Active Substance: ABATACEPT
     Route: 058
  396. ORENCIA [Suspect]
     Active Substance: ABATACEPT
     Route: 058
  397. ORENCIA [Suspect]
     Active Substance: ABATACEPT
     Route: 058
  398. ORENCIA [Suspect]
     Active Substance: ABATACEPT
     Route: 058
  399. ORENCIA [Suspect]
     Active Substance: ABATACEPT
     Route: 015
  400. XELJANZ [Suspect]
     Active Substance: TOFACITINIB CITRATE
     Indication: Rheumatoid arthritis
     Route: 048
  401. XELJANZ [Suspect]
     Active Substance: TOFACITINIB CITRATE
     Indication: Psoriatic arthropathy
     Route: 048
  402. XELJANZ [Suspect]
     Active Substance: TOFACITINIB CITRATE
     Route: 065
  403. XELJANZ [Suspect]
     Active Substance: TOFACITINIB CITRATE
     Route: 048
  404. XELJANZ [Suspect]
     Active Substance: TOFACITINIB CITRATE
     Route: 048
  405. XELJANZ [Suspect]
     Active Substance: TOFACITINIB CITRATE
     Route: 065
  406. XELJANZ [Suspect]
     Active Substance: TOFACITINIB CITRATE
     Route: 065
  407. XELJANZ [Suspect]
     Active Substance: TOFACITINIB CITRATE
     Route: 065
  408. XELJANZ [Suspect]
     Active Substance: TOFACITINIB CITRATE
     Route: 065
  409. XELJANZ [Suspect]
     Active Substance: TOFACITINIB CITRATE
     Dosage: 2 EVERY 1 DAY
     Route: 065
  410. XELJANZ [Suspect]
     Active Substance: TOFACITINIB CITRATE
     Route: 065
  411. XELJANZ [Suspect]
     Active Substance: TOFACITINIB CITRATE
     Route: 065
  412. TRAMADOL HYDROCHLORIDE [Suspect]
     Active Substance: TRAMADOL HYDROCHLORIDE
     Indication: Product used for unknown indication
     Route: 065
  413. OXYCODONE HYDROCHLORIDE [Suspect]
     Active Substance: OXYCODONE HYDROCHLORIDE
     Indication: Product used for unknown indication
     Route: 065
  414. ENTYVIO [Suspect]
     Active Substance: VEDOLIZUMAB
     Indication: Product used for unknown indication
     Route: 065
  415. ENTYVIO [Suspect]
     Active Substance: VEDOLIZUMAB
     Route: 065
  416. ENTYVIO [Suspect]
     Active Substance: VEDOLIZUMAB
     Route: 065
  417. RITUXIMAB [Suspect]
     Active Substance: RITUXIMAB
     Indication: Rheumatoid arthritis
     Route: 042
  418. RITUXIMAB [Suspect]
     Active Substance: RITUXIMAB
     Route: 048
  419. RITUXIMAB [Suspect]
     Active Substance: RITUXIMAB
     Route: 042
  420. RITUXIMAB [Suspect]
     Active Substance: RITUXIMAB
     Route: 058
  421. PREPARATION H NOS [Suspect]
     Active Substance: UNSPECIFIED INGREDIENT
     Indication: Rheumatoid arthritis
     Route: 030
  422. FOSAMAX [Suspect]
     Active Substance: ALENDRONATE SODIUM
     Indication: Product used for unknown indication
     Route: 016
  423. FOSAMAX [Suspect]
     Active Substance: ALENDRONATE SODIUM
     Indication: Rheumatoid arthritis
     Route: 048
  424. FOSAMAX [Suspect]
     Active Substance: ALENDRONATE SODIUM
     Route: 048
  425. FOSAMAX [Suspect]
     Active Substance: ALENDRONATE SODIUM
     Route: 065
  426. ASCORBIC ACID [Suspect]
     Active Substance: ASCORBIC ACID
     Indication: Product used for unknown indication
     Route: 016
  427. ASCORBIC ACID [Suspect]
     Active Substance: ASCORBIC ACID
     Route: 065

REACTIONS (102)
  - Breast cancer stage III [Fatal]
  - Thrombocytopenia [Fatal]
  - Irritable bowel syndrome [Fatal]
  - Insomnia [Fatal]
  - Hypertension [Fatal]
  - Infusion related reaction [Fatal]
  - Maternal exposure during pregnancy [Fatal]
  - Glossodynia [Fatal]
  - Impaired healing [Fatal]
  - Liver disorder [Fatal]
  - Pregnancy [Fatal]
  - Malaise [Fatal]
  - Drug hypersensitivity [Fatal]
  - Confusional state [Fatal]
  - Psoriasis [Fatal]
  - Musculoskeletal stiffness [Fatal]
  - Hypersensitivity [Fatal]
  - Joint range of motion decreased [Fatal]
  - Facet joint syndrome [Fatal]
  - Myositis [Fatal]
  - Wound infection [Fatal]
  - Subcutaneous drug absorption impaired [Fatal]
  - Weight increased [Fatal]
  - Anti-cyclic citrullinated peptide antibody [Fatal]
  - Arthropathy [Fatal]
  - Road traffic accident [Fatal]
  - Pulmonary fibrosis [Fatal]
  - Nasopharyngitis [Fatal]
  - Product use in unapproved indication [Fatal]
  - Migraine [Fatal]
  - Sleep disorder due to general medical condition, insomnia type [Fatal]
  - Dizziness [Fatal]
  - Nausea [Fatal]
  - Sleep disorder [Fatal]
  - Swollen joint count increased [Fatal]
  - Exposure during pregnancy [Fatal]
  - Swelling [Fatal]
  - Inflammation [Fatal]
  - Liver injury [Fatal]
  - Abdominal discomfort [Fatal]
  - Normal newborn [Fatal]
  - Stomatitis [Fatal]
  - Pustular psoriasis [Fatal]
  - X-ray abnormal [Fatal]
  - Fatigue [Fatal]
  - Memory impairment [Fatal]
  - Synovitis [Fatal]
  - Sciatica [Fatal]
  - Pain [Fatal]
  - Condition aggravated [Fatal]
  - General physical health deterioration [Fatal]
  - Vomiting [Fatal]
  - Duodenal ulcer perforation [Fatal]
  - Systemic lupus erythematosus [Fatal]
  - C-reactive protein [Fatal]
  - Urticaria [Fatal]
  - Muscle injury [Fatal]
  - Helicobacter infection [Fatal]
  - Rheumatoid factor positive [Fatal]
  - Mobility decreased [Fatal]
  - Oedema peripheral [Fatal]
  - Pneumonia [Fatal]
  - Dry mouth [Fatal]
  - Ill-defined disorder [Fatal]
  - Bursitis [Fatal]
  - Live birth [Fatal]
  - Adverse event [Fatal]
  - Pain in extremity [Fatal]
  - Pericarditis [Fatal]
  - Abdominal pain upper [Fatal]
  - Hypoaesthesia [Fatal]
  - Joint swelling [Fatal]
  - Lip dry [Fatal]
  - Pyrexia [Fatal]
  - Rheumatoid arthritis [Fatal]
  - Weight decreased [Fatal]
  - Rheumatic fever [Fatal]
  - Psoriatic arthropathy [Fatal]
  - Drug intolerance [Fatal]
  - Prescribed overdose [Fatal]
  - Sinusitis [Fatal]
  - Diarrhoea [Fatal]
  - Wheezing [Fatal]
  - Peripheral swelling [Fatal]
  - Pruritus [Fatal]
  - Rash [Fatal]
  - Folliculitis [Fatal]
  - C-reactive protein abnormal [Fatal]
  - Oedema [Fatal]
  - Maternal exposure timing unspecified [Fatal]
  - Hepatic enzyme increased [Fatal]
  - Hand deformity [Fatal]
  - Injury [Fatal]
  - Pemphigus [Fatal]
  - Decreased appetite [Fatal]
  - Lower respiratory tract infection [Fatal]
  - Infection [Fatal]
  - Type 2 diabetes mellitus [Fatal]
  - Wound [Fatal]
  - Fibromyalgia [Fatal]
  - Rash vesicular [Fatal]
  - Delirium [Fatal]
